FAERS Safety Report 6000588-3 (Version None)
Quarter: 2008Q4

REPORT INFORMATION
  Report Type: 
  Country: None (occurrence: None)
  Receive Date: 20081215
  Receipt Date: 20081203
  Transmission Date: 20090506
  Serious: Yes (Death)
  Sender: FDA-Public Use
  Company Number: DE-ROCHE-600732

PATIENT
  Sex: Male
  Weight: 59 kg

DRUGS (10)
  1. CAPECITABINE [Suspect]
     Dosage: FREQUENCY: DAY1 TO DAY14, QD22
     Route: 048
     Dates: start: 20080710, end: 20080722
  2. CAPECITABINE [Suspect]
     Dosage: TWO WEEK TREATMENT AND ONE WEEK REST
     Route: 048
     Dates: start: 20080808
  3. DOCETAXEL [Suspect]
     Route: 042
     Dates: start: 20080710, end: 20081124
  4. OXALIPLATIN [Suspect]
     Route: 042
     Dates: start: 20080710, end: 20081124
  5. ACTRAPID [Suspect]
     Indication: DIABETES MELLITUS
     Route: 065
  6. CLEXANE [Concomitant]
  7. BISOPROLOL FUMARATE [Concomitant]
  8. PANTOPRAZOLE SODIUM [Concomitant]
  9. KALINOR RETARD [Concomitant]
  10. METHIMAZOLE [Concomitant]

REACTIONS (1)
  - DEATH [None]
